FAERS Safety Report 22205728 (Version 1)
Quarter: 2023Q2

REPORT INFORMATION
  Report Type: Spontaneous
  Country: US (occurrence: US)
  Receive Date: 20230413
  Receipt Date: 20230413
  Transmission Date: 20230722
  Serious: No
  Sender: FDA-Public Use
  Company Number: US-SA-SAC20230412000136

PATIENT
  Age: 18 Year
  Sex: Female

DRUGS (8)
  1. DUPIXENT [Suspect]
     Active Substance: DUPILUMAB
     Indication: Dermatitis atopic
     Dosage: 200 MG, QOW
     Route: 058
     Dates: start: 20220712
  2. AMITIZA [Concomitant]
     Active Substance: LUBIPROSTONE
  3. FAMOTIDINE [Concomitant]
     Active Substance: FAMOTIDINE
  4. MOTEGRITY [Concomitant]
     Active Substance: PRUCALOPRIDE SUCCINATE
  5. OMEPRAZOLE [Concomitant]
     Active Substance: OMEPRAZOLE
  6. PROZAC [Concomitant]
     Active Substance: FLUOXETINE HYDROCHLORIDE
  7. STRATTERA [Concomitant]
     Active Substance: ATOMOXETINE HYDROCHLORIDE
  8. VITAMINS NOS [Concomitant]
     Active Substance: VITAMINS

REACTIONS (4)
  - Discomfort [Unknown]
  - Sleep disorder [Unknown]
  - Rash [Unknown]
  - Dermatitis atopic [Recovering/Resolving]
